FAERS Safety Report 12140349 (Version 1)
Quarter: 2016Q1

REPORT INFORMATION
  Report Type: Spontaneous
  Country: US (occurrence: None)
  Receive Date: 20160302
  Receipt Date: 20160302
  Transmission Date: 20160526
  Serious: No
  Sender: FDA-Public Use
  Company Number: None

PATIENT
  Age: 68 Year
  Sex: Female
  Weight: 79.38 kg

DRUGS (10)
  1. MULTI [Concomitant]
  2. VITAMIN E [Concomitant]
     Active Substance: .ALPHA.-TOCOPHEROL
  3. GARLIC OIL [Concomitant]
     Active Substance: GARLIC OIL
  4. CITALOPRAM [Concomitant]
     Active Substance: CITALOPRAM HYDROBROMIDE
  5. CALCIUM W/D3 [Concomitant]
  6. BIOTIN [Concomitant]
     Active Substance: BIOTIN
  7. LEVOTHYROXIN [Concomitant]
     Active Substance: LEVOTHYROXINE
  8. TAMSULOSIN SANDOZ [Suspect]
     Active Substance: TAMSULOSIN
     Indication: BLADDER DISORDER
     Dosage: .4 MG 1 CAPSULE 2X^S DAILY MOUTH
     Route: 048
     Dates: start: 20160201, end: 20160201
  9. B6 [Concomitant]
     Active Substance: PYRIDOXINE HYDROCHLORIDE
  10. FISH OIL [Concomitant]
     Active Substance: FISH OIL

REACTIONS (6)
  - Feeling abnormal [None]
  - Paraesthesia [None]
  - Palpitations [None]
  - Feeling cold [None]
  - Vision blurred [None]
  - Tremor [None]

NARRATIVE: CASE EVENT DATE: 20160201
